FAERS Safety Report 16346588 (Version 2)
Quarter: 2019Q2

REPORT INFORMATION
  Report Type: Report from Study
  Country: US (occurrence: US)
  Receive Date: 20190523
  Receipt Date: 20190612
  Transmission Date: 20190711
  Serious: Yes (Other)
  Sender: FDA-Public Use
  Company Number: PHEH2019US021693

PATIENT
  Sex: Female

DRUGS (1)
  1. TRAVATAN Z [Suspect]
     Active Substance: TRAVOPROST
     Indication: GLAUCOMA
     Dosage: 1 GTT, QHS, OU (BOTH EYES)
     Route: 047
     Dates: start: 20161004

REACTIONS (5)
  - Arthritis [Unknown]
  - Depression [Unknown]
  - Hypertension [Unknown]
  - Myocardial infarction [Unknown]
  - Reaction to excipient [Unknown]
